FAERS Safety Report 9099520 (Version 1)
Quarter: 2013Q1

REPORT INFORMATION
  Report Type: Report from Study
  Country: BE (occurrence: BE)
  Receive Date: 20130214
  Receipt Date: 20130214
  Transmission Date: 20140127
  Serious: Yes (Other)
  Sender: FDA-Public Use
  Company Number: BE-ROCHE-1187401

PATIENT
  Sex: Male
  Weight: 45 kg

DRUGS (10)
  1. TAMIFLU [Suspect]
     Indication: INFLUENZA
     Route: 042
     Dates: start: 20130124, end: 20130129
  2. AMOXICILLIN [Concomitant]
     Indication: INFLUENZA
     Route: 042
     Dates: start: 20130124
  3. CLINDAMYCIN [Concomitant]
     Indication: INFLUENZA
     Route: 042
     Dates: start: 20130123, end: 20130126
  4. AMPICILLIN [Concomitant]
     Indication: INFLUENZA
     Route: 042
     Dates: start: 20130123, end: 20130129
  5. OMEPRAZOL [Concomitant]
     Indication: PRODUCT USED FOR UNKNOWN INDICATION
     Route: 042
     Dates: start: 20130124
  6. RANITIDINE [Concomitant]
     Indication: PRODUCT USED FOR UNKNOWN INDICATION
     Route: 042
     Dates: start: 20130124, end: 20130124
  7. PARACETAMOL [Concomitant]
     Indication: PRODUCT USED FOR UNKNOWN INDICATION
     Route: 042
     Dates: start: 20130124, end: 20130125
  8. FENTANYL [Concomitant]
     Indication: PRODUCT USED FOR UNKNOWN INDICATION
     Route: 065
     Dates: start: 20130124
  9. INSULIN [Concomitant]
     Indication: PRODUCT USED FOR UNKNOWN INDICATION
     Route: 065
     Dates: start: 20130124, end: 20130126
  10. BUMETANIDE [Concomitant]
     Indication: PRODUCT USED FOR UNKNOWN INDICATION
     Route: 065
     Dates: start: 20130124

REACTIONS (1)
  - Hypotension [Recovered/Resolved]
